FAERS Safety Report 5479008-3 (Version None)
Quarter: 2007Q4

REPORT INFORMATION
  Report Type: 
  Country: None (occurrence: None)
  Receive Date: 20071006
  Receipt Date: 20070925
  Transmission Date: 20080405
  Serious: Yes (Other)
  Sender: FDA-Public Use
  Company Number: US-PFIZER INC-2007080531

PATIENT
  Sex: Female
  Weight: 62.6 kg

DRUGS (5)
  1. GEODON [Suspect]
     Indication: MOOD ALTERED
     Dates: start: 20070801, end: 20070920
  2. LITHIUM [Concomitant]
  3. LAMICTAL [Concomitant]
  4. LUNESTA [Concomitant]
  5. TRAZODONE HCL [Concomitant]

REACTIONS (5)
  - AGITATION [None]
  - CHOKING SENSATION [None]
  - DYSPHAGIA [None]
  - DYSPNOEA [None]
  - SLEEP DISORDER [None]
